FAERS Safety Report 5640660-0 (Version None)
Quarter: 2008Q1

REPORT INFORMATION
  Report Type: 
  Country: None (occurrence: None)
  Receive Date: 20080227
  Receipt Date: 20080215
  Transmission Date: 20080703
  Serious: Yes (Hospitalization)
  Sender: FDA-Public Use
  Company Number: FR-AMGEN-US266330

PATIENT
  Age: 65 Year
  Sex: Male

DRUGS (3)
  1. ENBREL [Suspect]
     Indication: RHEUMATOID ARTHRITIS
     Dosage: UNKNOWN
     Route: 058
     Dates: start: 20070101, end: 20080201
  2. CORTICOSTEROID NOS [Suspect]
     Route: 048
  3. NOVATREX [Suspect]
     Dosage: 10 MG TOTAL WEEKLY
     Route: 048
     Dates: end: 20080201

REACTIONS (7)
  - ANAEMIA [None]
  - BALANCE DISORDER [None]
  - LEUKOENCEPHALOPATHY [None]
  - LYMPHOPENIA [None]
  - MEMORY IMPAIRMENT [None]
  - MENINGITIS [None]
  - PSYCHOMOTOR SKILLS IMPAIRED [None]
